FAERS Safety Report 5192024-4 (Version None)
Quarter: 2006Q4

REPORT INFORMATION
  Report Type: 
  Country: None (occurrence: None)
  Receive Date: 20061220
  Receipt Date: 20061220
  Transmission Date: 20070319
  Serious: Yes (Hospitalization)
  Sender: FDA-Public Use
  Company Number: None

PATIENT
  Age: 68 Year
  Sex: Male
  Weight: 102.5129 kg

DRUGS (4)
  1. LISINOPRIL [Suspect]
     Indication: HYPERTENSION
     Dosage: DAILY PO
     Route: 048
  2. METFORMIN HCL [Concomitant]
  3. ASPIRIN [Concomitant]
  4. VYTORIN [Concomitant]

REACTIONS (1)
  - ANGIONEUROTIC OEDEMA [None]
